FAERS Safety Report 9337864 (Version 2)
Quarter: 2013Q3

REPORT INFORMATION
  Report Type: Spontaneous
  Country: DE (occurrence: DE)
  Receive Date: 20130608
  Receipt Date: 20130725
  Transmission Date: 20140515
  Serious: Yes (Life-Threatening, Hospitalization, Other)
  Sender: FDA-Public Use
  Company Number: DE-MERCK-1306DEU002013

PATIENT
  Age: 43 Year
  Sex: Male
  Weight: 50 kg

DRUGS (5)
  1. VICTRELIS [Suspect]
     Indication: HEPATITIS C
     Dosage: 800 MG, TID
     Route: 048
     Dates: start: 20130108, end: 20130123
  2. PEGINTRON [Suspect]
     Indication: HEPATITIS C
     Dosage: UNK
     Route: 058
     Dates: start: 20121210, end: 20130121
  3. COPEGUS [Suspect]
     Indication: HEPATITIS C
     Dosage: UNK
     Route: 048
     Dates: start: 20121210, end: 20130123
  4. ERGENYL [Suspect]
     Indication: CONVULSION
     Dosage: 1000 MG, BID
     Route: 048
     Dates: start: 2007, end: 20130125
  5. MIRTAZAPINE [Concomitant]
     Indication: AGITATION
     Dosage: 15 MG, QD
     Route: 048
     Dates: start: 20130112, end: 20130122

REACTIONS (3)
  - Oedematous pancreatitis [Recovered/Resolved]
  - Pancytopenia [Recovered/Resolved]
  - Hepatic function abnormal [Recovered/Resolved]
